FAERS Safety Report 5767427-7 (Version None)
Quarter: 2008Q2

REPORT INFORMATION
  Report Type: 
  Country: None (occurrence: None)
  Receive Date: 20080612
  Receipt Date: 20070920
  Transmission Date: 20081010
  Serious: Yes (Other)
  Sender: FDA-Public Use
  Company Number: BR-ASTRAZENECA-2008UW10004

PATIENT
  Age: 40 Year
  Sex: Female

DRUGS (3)
  1. ZOLADEX [Suspect]
     Indication: UTERINE LEIOMYOMA
     Route: 058
     Dates: start: 20060701, end: 20061101
  2. PREDNISONE TAB [Concomitant]
     Route: 048
     Dates: start: 20070301
  3. HEPARIN [Concomitant]
     Route: 058
     Dates: start: 20070301

REACTIONS (5)
  - CHEST PAIN [None]
  - DRUG EXPOSURE DURING PREGNANCY [None]
  - HAEMATOMA [None]
  - MALAISE [None]
  - NAUSEA [None]
